FAERS Safety Report 22613534 (Version 2)
Quarter: 2023Q2

REPORT INFORMATION
  Report Type: Spontaneous
  Country: JP (occurrence: JP)
  Receive Date: 20230619
  Receipt Date: 20230623
  Transmission Date: 20230721
  Serious: Yes (Other)
  Sender: FDA-Public Use
  Company Number: JP-TAKEDA-2023TJP004736

PATIENT
  Age: 12 Year
  Sex: Male

DRUGS (9)
  1. ADYNOVATE [Suspect]
     Active Substance: ANTIHEMOPHILIC FACTOR, HUMAN RECOMBINANT
     Indication: Haemorrhagic diathesis
     Dosage: 2000 INTERNATIONAL UNIT
     Route: 042
     Dates: start: 20230412, end: 20230412
  2. ADYNOVATE [Suspect]
     Active Substance: ANTIHEMOPHILIC FACTOR, HUMAN RECOMBINANT
     Indication: Haemorrhagic diathesis
     Dosage: 2000 INTERNATIONAL UNIT
     Route: 042
     Dates: start: 20230412, end: 20230412
  3. ADYNOVATE [Suspect]
     Active Substance: ANTIHEMOPHILIC FACTOR, HUMAN RECOMBINANT
     Indication: Haemorrhagic diathesis
     Dosage: 2000 INTERNATIONAL UNIT
     Route: 042
     Dates: start: 20230412, end: 20230412
  4. ADYNOVATE [Suspect]
     Active Substance: ANTIHEMOPHILIC FACTOR, HUMAN RECOMBINANT
     Indication: Haemorrhage prophylaxis
     Dosage: UNK
     Route: 042
     Dates: start: 202304, end: 202304
  5. ADYNOVATE [Suspect]
     Active Substance: ANTIHEMOPHILIC FACTOR, HUMAN RECOMBINANT
     Indication: Haemorrhage prophylaxis
     Dosage: UNK
     Route: 042
     Dates: start: 202304, end: 202304
  6. ADYNOVATE [Suspect]
     Active Substance: ANTIHEMOPHILIC FACTOR, HUMAN RECOMBINANT
     Indication: Haemorrhage prophylaxis
     Dosage: UNK
     Route: 042
     Dates: start: 202304, end: 202304
  7. ADYNOVATE [Suspect]
     Active Substance: ANTIHEMOPHILIC FACTOR, HUMAN RECOMBINANT
     Dosage: UNK
     Route: 042
     Dates: start: 202304, end: 202304
  8. ADYNOVATE [Suspect]
     Active Substance: ANTIHEMOPHILIC FACTOR, HUMAN RECOMBINANT
     Dosage: UNK
     Route: 042
     Dates: start: 202304, end: 202304
  9. ADYNOVATE [Suspect]
     Active Substance: ANTIHEMOPHILIC FACTOR, HUMAN RECOMBINANT
     Dosage: UNK
     Route: 042
     Dates: start: 202304, end: 202304

REACTIONS (1)
  - Polymers allergy [Recovered/Resolved]

NARRATIVE: CASE EVENT DATE: 20230412
